FAERS Safety Report 16440057 (Version 1)
Quarter: 2019Q2

REPORT INFORMATION
  Report Type: Spontaneous
  Country: DE (occurrence: DE)
  Receive Date: 20190617
  Receipt Date: 20190617
  Transmission Date: 20190711
  Serious: Yes (Life-Threatening, Hospitalization)
  Sender: FDA-Public Use
  Company Number: DE-PFIZER INC-2019255320

PATIENT
  Age: 69 Year
  Sex: Female

DRUGS (2)
  1. ATORVASTATIN BASICS [Suspect]
     Active Substance: ATORVASTATIN
     Dosage: UNK
     Dates: start: 2015
  2. SORTIS [Suspect]
     Active Substance: ATORVASTATIN
     Dosage: UNK
     Dates: start: 2015

REACTIONS (1)
  - Muscle necrosis [Unknown]
